FAERS Safety Report 6568288-9 (Version None)
Quarter: 2010Q1

REPORT INFORMATION
  Report Type: 
  Country: None (occurrence: None)
  Receive Date: 20100203
  Receipt Date: 20100122
  Transmission Date: 20100710
  Serious: Yes (Other)
  Sender: FDA-Public Use
  Company Number: US-BAYER-201012341NA

PATIENT
  Age: 54 Year
  Sex: Female
  Weight: 104 kg

DRUGS (7)
  1. ULTRAVIST 300 [Suspect]
     Indication: COMPUTERISED TOMOGRAM ABDOMEN
     Dosage: TOTAL DAILY DOSE: 100 ML  UNIT DOSE: 100 ML
     Route: 042
     Dates: start: 20100122, end: 20100122
  2. PREDNISONE [Concomitant]
     Indication: PREMEDICATION
     Dosage: 24 HOURS BEFORE SCAN
     Dates: start: 20100121, end: 20100121
  3. PREDNISONE [Concomitant]
     Dosage: 12 HOURS BEFORE SCAN
     Dates: start: 20100101
  4. PREDNISONE [Concomitant]
     Dosage: 1 HOUR BEFORE SCAN
     Dates: start: 20100122, end: 20100122
  5. BENADRYL [Concomitant]
     Indication: PREMEDICATION
     Dosage: AS USED: 50 MG
     Dates: start: 20100122, end: 20100122
  6. E-Z CAT [Concomitant]
     Route: 048
  7. ZANTAC [Concomitant]

REACTIONS (2)
  - THROAT TIGHTNESS [None]
  - URTICARIA [None]
